FAERS Safety Report 9396155 (Version 3)
Quarter: 2013Q3

REPORT INFORMATION
  Report Type: Report from Study
  Country: JP (occurrence: JP)
  Receive Date: 20130711
  Receipt Date: 20130724
  Transmission Date: 20140515
  Serious: Yes (Death, Hospitalization, Other)
  Sender: FDA-Public Use
  Company Number: JP-B.I. PHARMACEUTICALS,INC./RIDGEFIELD-2013-BI-09464GD

PATIENT
  Age: 82 Year
  Sex: Female

DRUGS (2)
  1. PRADAXA [Suspect]
     Dosage: 220 MG
     Route: 048
     Dates: end: 20111005
  2. WARFARIN [Suspect]

REACTIONS (4)
  - Cardiogenic shock [Fatal]
  - Shock haemorrhagic [Fatal]
  - Pneumonia aspiration [Fatal]
  - Haemorrhage subcutaneous [Recovered/Resolved]
